FAERS Safety Report 6069287-6 (Version None)
Quarter: 2009Q1

REPORT INFORMATION
  Report Type: 
  Country: None (occurrence: None)
  Receive Date: 20090206
  Receipt Date: 20090126
  Transmission Date: 20090719
  Serious: Yes (Hospitalization)
  Sender: FDA-Public Use
  Company Number: SE-PFIZER INC-2009159916

PATIENT

DRUGS (4)
  1. LYRICA [Suspect]
     Indication: PAIN
     Dosage: DAILY
     Route: 048
     Dates: start: 20060201, end: 20060331
  2. METFORMIN [Concomitant]
  3. METHOTREXATE [Concomitant]
  4. FOLACIN [Concomitant]
     Dosage: 5 MG

REACTIONS (1)
  - BREAST CANCER MALE [None]
